FAERS Safety Report 21649801 (Version 2)
Quarter: 2022Q4

REPORT INFORMATION
  Report Type: Spontaneous
  Country: IT (occurrence: IT)
  Receive Date: 20221128
  Receipt Date: 20221212
  Transmission Date: 20230113
  Serious: Yes (Hospitalization, Other)
  Sender: FDA-Public Use
  Company Number: IT-TEVA-2022-IT-2828997

PATIENT
  Age: 67 Year
  Sex: Male

DRUGS (4)
  1. FLUDARABINE [Suspect]
     Active Substance: FLUDARABINE PHOSPHATE
     Indication: Chronic lymphocytic leukaemia
     Route: 065
  2. CYCLOPHOSPHAMIDE [Suspect]
     Active Substance: CYCLOPHOSPHAMIDE
     Indication: Chronic lymphocytic leukaemia
     Route: 065
  3. RITUXIMAB [Suspect]
     Active Substance: RITUXIMAB
     Indication: Chronic lymphocytic leukaemia
     Route: 065
  4. IBRUTINIB [Suspect]
     Active Substance: IBRUTINIB
     Indication: Chronic lymphocytic leukaemia
     Dosage: ADDITIONAL INFO: ACTION TAKEN: DRUG WAS STOPPED AND AGAIN RESUMED DUE TO UNDERLINE DISEASE PROGRESSI
     Route: 065
     Dates: start: 2018

REACTIONS (8)
  - Oral viral infection [Unknown]
  - Herpes zoster [Unknown]
  - Neuritis [Unknown]
  - Oral bacterial infection [Unknown]
  - Pseudomonas infection [Unknown]
  - COVID-19 [Recovered/Resolved]
  - Post-acute COVID-19 syndrome [Recovered/Resolved]
  - Drug resistance [Unknown]
